FAERS Safety Report 5739632-7 (Version None)
Quarter: 2008Q2

REPORT INFORMATION
  Report Type: 
  Country: None (occurrence: None)
  Receive Date: 20080513
  Receipt Date: 20080212
  Transmission Date: 20081010
  Serious: Yes (Life-Threatening, Hospitalization)
  Sender: FDA-Public Use
  Company Number: 81203

PATIENT
  Age: 71 Year
  Sex: Male
  Weight: 120.5 kg

DRUGS (1)
  1. NAPROXEN [Suspect]
     Indication: ARTHRALGIA
     Dosage: 500MG/2/1DAY/ORAL
     Route: 048
     Dates: start: 20071023, end: 20071218

REACTIONS (1)
  - GASTRIC HAEMORRHAGE [None]
